FAERS Safety Report 7770807-1 (Version None)
Quarter: 2011Q3

REPORT INFORMATION
  Report Type: 
  Country: None (occurrence: None)
  Receive Date: 20110922
  Receipt Date: 20110505
  Transmission Date: 20111222
  Serious: No
  Sender: FDA-Public Use
  Company Number: US-ASTRAZENECA-2011SE22957

PATIENT
  Age: 32 Year
  Sex: Male
  Weight: 97.5 kg

DRUGS (1)
  1. SEROQUEL [Suspect]
     Route: 048
     Dates: start: 20090101

REACTIONS (10)
  - DECREASED APPETITE [None]
  - BLOOD PRESSURE INCREASED [None]
  - DRUG DEPENDENCE [None]
  - PALPITATIONS [None]
  - WEIGHT INCREASED [None]
  - ANXIETY [None]
  - DYSPNOEA [None]
  - NAUSEA [None]
  - SLEEP DISORDER [None]
  - DRUG DOSE OMISSION [None]
